FAERS Safety Report 7128412-6 (Version None)
Quarter: 2010Q4

REPORT INFORMATION
  Report Type: 
  Country: None (occurrence: None)
  Receive Date: 20101130
  Receipt Date: 20101123
  Transmission Date: 20110411
  Serious: Yes (Hospitalization)
  Sender: FDA-Public Use
  Company Number: PHHO2010FR17463

PATIENT
  Sex: Male

DRUGS (3)
  1. CERTICAN [Suspect]
     Indication: RENAL TRANSPLANT
     Dosage: 3.75 MG, BID
     Route: 048
     Dates: start: 20101013
  2. MYFORTIC [Concomitant]
     Indication: RENAL TRANSPLANT
     Dosage: 360 MG, BID
     Route: 048
     Dates: start: 20101007
  3. SOLUPRED [Suspect]
     Indication: RENAL TRANSPLANT

REACTIONS (7)
  - ABDOMINAL PAIN [None]
  - BRONCHITIS [None]
  - DYSURIA [None]
  - HYPERTHERMIA [None]
  - KIDNEY TRANSPLANT REJECTION [None]
  - PRODUCTIVE COUGH [None]
  - RENAL FAILURE ACUTE [None]
